FAERS Safety Report 8329073-0 (Version None)
Quarter: 2012Q2

REPORT INFORMATION
  Report Type: 
  Country: None (occurrence: None)
  Receive Date: 20120502
  Receipt Date: 20120430
  Transmission Date: 20120825
  Serious: No
  Sender: FDA-Public Use
  Company Number: US-PFIZER INC-2012075032

PATIENT

DRUGS (2)
  1. CELEBREX [Suspect]
     Indication: ARTHRITIS
     Dosage: 400 MG, UNK
  2. CELEBREX [Suspect]
     Dosage: 200 MG, UNK

REACTIONS (3)
  - ARTHRITIS [None]
  - OSTEOARTHRITIS [None]
  - EXPIRED DRUG ADMINISTERED [None]
